FAERS Safety Report 16430913 (Version 1)
Quarter: 2019Q2

REPORT INFORMATION
  Report Type: Spontaneous
  Country: RU (occurrence: RU)
  Receive Date: 20190614
  Receipt Date: 20190614
  Transmission Date: 20190711
  Serious: Yes (Other)
  Sender: FDA-Public Use
  Company Number: RU-ROCHE-2333312

PATIENT
  Sex: Male

DRUGS (1)
  1. VEMURAFENIB. [Suspect]
     Active Substance: VEMURAFENIB
     Indication: METASTATIC MALIGNANT MELANOMA
     Route: 065

REACTIONS (4)
  - Skin toxicity [Recovered/Resolved]
  - Deafness [Recovered/Resolved]
  - Fatigue [Recovered/Resolved]
  - Treatment failure [Unknown]
